FAERS Safety Report 24679303 (Version 1)
Quarter: 2024Q4

REPORT INFORMATION
  Report Type: Other
  Country: CA (occurrence: CA)
  Receive Date: 20241129
  Receipt Date: 20241129
  Transmission Date: 20250115
  Serious: Yes (Other)
  Sender: GLENMARK
  Company Number: CA-GLENMARK PHARMACEUTICALS-2024GMK095735

PATIENT

DRUGS (2)
  1. GABAPENTIN [Suspect]
     Active Substance: GABAPENTIN
     Indication: Hyperaesthesia
     Dosage: 2400 MILLIGRAM
     Route: 048
  2. TERIFLUNOMIDE [Suspect]
     Active Substance: TERIFLUNOMIDE
     Indication: Relapsing-remitting multiple sclerosis
     Dosage: 14 MILLIGRAM, 1 EVERY 1 DAYS
     Route: 048

REACTIONS (5)
  - Expanded disability status scale score increased [Unknown]
  - Jaw operation [Unknown]
  - Multiple sclerosis relapse [Unknown]
  - Hyperaesthesia [Unknown]
  - Off label use [Unknown]
